FAERS Safety Report 16624920 (Version 1)
Quarter: 2019Q3

REPORT INFORMATION
  Report Type: Spontaneous
  Country: US (occurrence: US)
  Receive Date: 20190611
  Receipt Date: 20190611
  Transmission Date: 20191004
  Serious: No
  Sender: FDA-Public Use
  Company Number: None

PATIENT

DRUGS (1)
  1. AJOVY [Suspect]
     Active Substance: FREMANEZUMAB-VFRM

REACTIONS (7)
  - Poor quality product administered [None]
  - Migraine [None]
  - Impaired driving ability [None]
  - Loss of consciousness [None]
  - Syncope [None]
  - Product storage error [None]
  - Loss of personal independence in daily activities [None]
